FAERS Safety Report 5481365-9 (Version None)
Quarter: 2007Q4

REPORT INFORMATION
  Report Type: 
  Country: None (occurrence: None)
  Receive Date: 20071010
  Receipt Date: 20071002
  Transmission Date: 20080405
  Serious: Yes (Death)
  Sender: FDA-Public Use
  Company Number: GB-AVENTIS-200615221EU

PATIENT
  Age: 80 Year
  Sex: Female

DRUGS (3)
  1. LASIX [Suspect]
     Dosage: DOSE: UNKNOWN DOSAGE
  2. RISPERDAL [Suspect]
     Indication: SCHIZOPHRENIA
     Route: 048
  3. UNKNOWN DRUG [Concomitant]

REACTIONS (3)
  - DEATH [None]
  - DRUG INTERACTION [None]
  - GENERAL PHYSICAL HEALTH DETERIORATION [None]
